FAERS Safety Report 20879154 (Version 1)
Quarter: 2022Q2

REPORT INFORMATION
  Report Type: Spontaneous
  Country: ES (occurrence: ES)
  Receive Date: 20220526
  Receipt Date: 20220526
  Transmission Date: 20220721
  Serious: Yes (Hospitalization)
  Sender: FDA-Public Use
  Company Number: ES-DSJP-DSE-2022-117561

PATIENT
  Sex: Male

DRUGS (2)
  1. EDOXABAN [Suspect]
     Active Substance: EDOXABAN
     Indication: Atrial fibrillation
     Dosage: UNK
  2. EDOXABAN [Suspect]
     Active Substance: EDOXABAN
     Indication: Basal ganglia stroke

REACTIONS (2)
  - Periprosthetic metallosis [Recovered/Resolved]
  - Inflammatory marker increased [Recovered/Resolved]
